FAERS Safety Report 7029012-9 (Version None)
Quarter: 2010Q4

REPORT INFORMATION
  Report Type: 
  Country: None (occurrence: None)
  Receive Date: 20101005
  Receipt Date: 20100929
  Transmission Date: 20110411
  Serious: Yes (Hospitalization)
  Sender: FDA-Public Use
  Company Number: A0884587A

PATIENT
  Age: 61 Year
  Sex: Female
  Weight: 102 kg

DRUGS (11)
  1. NABUMETONE [Suspect]
     Indication: OSTEOARTHRITIS
     Route: 048
     Dates: start: 20100826, end: 20100905
  2. LAMISIL [Suspect]
     Indication: ONYCHOMYCOSIS
     Route: 048
     Dates: start: 20100825, end: 20100904
  3. BLINDED TRIAL MEDICATION [Concomitant]
     Indication: OSTEOARTHRITIS
     Route: 058
     Dates: start: 20100226, end: 20100623
  4. TYLENOL [Concomitant]
     Dates: start: 20080101
  5. VITAMIN B-12 [Concomitant]
     Dates: start: 20070101
  6. MULTI-VITAMIN [Concomitant]
     Dates: start: 20000101
  7. PRILOSEC [Concomitant]
     Dates: start: 20080101
  8. XANAX [Concomitant]
     Dates: start: 20091001
  9. ROBAXIN [Concomitant]
     Dates: start: 20100310
  10. MOBIC [Concomitant]
     Dates: start: 20100511, end: 20100825
  11. SYNTHROID [Concomitant]
     Dates: start: 19820101

REACTIONS (2)
  - ACUTE GENERALISED EXANTHEMATOUS PUSTULOSIS [None]
  - RASH [None]
